FAERS Safety Report 8959449 (Version 1)
Quarter: 2012Q4

REPORT INFORMATION
  Report Type: 
  Country: PL (occurrence: PL)
  Receive Date: 20121211
  Receipt Date: 20121211
  Transmission Date: 20130627
  Serious: Yes (Hospitalization, Other)
  Sender: FDA-Public Use
  Company Number: PL-TEVA-374074ISR

PATIENT
  Age: 13 Year
  Sex: Male

DRUGS (2)
  1. VALPROIC ACID [Suspect]
     Indication: EPILEPSY
     Dosage: 20 mg/kg Daily;
     Route: 065
  2. LORATADINE [Concomitant]
     Indication: SEASONAL ALLERGY
     Route: 065

REACTIONS (3)
  - Anaemia macrocytic [Recovered/Resolved]
  - Pallor [Recovered/Resolved]
  - Erythropoiesis abnormal [Recovered/Resolved]
